FAERS Safety Report 4799735-0 (Version None)
Quarter: 2005Q4

REPORT INFORMATION
  Report Type: 
  Country: None (occurrence: None)
  Receive Date: 20051011
  Receipt Date: 20051011
  Transmission Date: 20060501
  Serious: Yes (Hospitalization)
  Sender: FDA-Public Use
  Company Number: None

PATIENT
  Age: 84 Year
  Sex: Male
  Weight: 81.6475 kg

DRUGS (5)
  1. MORPHINE SUL TAB [Suspect]
     Indication: BACK PAIN
     Dosage: 15 MG PO TID
     Route: 048
     Dates: start: 20050317
  2. MORPHINE SUL TAB [Suspect]
     Indication: METASTASES TO BONE
     Dosage: 15 MG PO TID
     Route: 048
     Dates: start: 20050317
  3. MORPHINE SUL TAB [Suspect]
     Indication: PROSTATE CANCER METASTATIC
     Dosage: 15 MG PO TID
     Route: 048
     Dates: start: 20050317
  4. PERCOCET [Suspect]
     Dosage: 1-2 TABS PO Q 4-6 HRS PRN
     Route: 048
     Dates: start: 20050317
  5. DEXAMETHASONE [Concomitant]

REACTIONS (2)
  - CONFUSIONAL STATE [None]
  - MENTAL STATUS CHANGES [None]
